FAERS Safety Report 7581403-3 (Version None)
Quarter: 2011Q2

REPORT INFORMATION
  Report Type: 
  Country: None (occurrence: None)
  Receive Date: 20110629
  Receipt Date: 20110616
  Transmission Date: 20111010
  Serious: Yes (Hospitalization, Other)
  Sender: FDA-Public Use
  Company Number: PHHY2011NL44546

PATIENT
  Sex: Female

DRUGS (5)
  1. ZOMETA [Suspect]
     Indication: LUNG CANCER METASTATIC
     Dosage: 4 MG, PER 5 ML IN 20 MINUTES, 1X PER 21 DAYS
     Dates: start: 20110411
  2. ZOMETA [Suspect]
     Dates: start: 20110530
  3. FLUCONAZOLE [Concomitant]
     Dosage: 50 MG, TID
  4. ZOMETA [Suspect]
     Dosage: 4 MG/ 5 ML IN 20 MINUTES, 1X PER 21 DAYS
     Dates: start: 20110503
  5. ANTIBIOTICS [Concomitant]

REACTIONS (10)
  - EATING DISORDER [None]
  - DEHYDRATION [None]
  - FUNGAL INFECTION [None]
  - PAIN [None]
  - DIARRHOEA [None]
  - FLUID INTAKE REDUCED [None]
  - GASTRITIS [None]
  - WEIGHT DECREASED [None]
  - VOMITING [None]
  - ABDOMINAL PAIN UPPER [None]
